FAERS Safety Report 4578706-3 (Version None)
Quarter: 2005Q1

REPORT INFORMATION
  Report Type: 
  Country: None (occurrence: None)
  Receive Date: 20050211
  Receipt Date: 20030422
  Transmission Date: 20050727
  Serious: Yes (Other)
  Sender: FDA-Public Use
  Company Number: PHFR2003GB01758

PATIENT
  Age: 27 Year
  Sex: Male
  Weight: 86 kg

DRUGS (5)
  1. PROCYCLIDINE HYDROCHLORIDE 2MG TAB [Concomitant]
     Route: 065
  2. GLIPIZIDE [Concomitant]
     Indication: DIABETES MELLITUS
     Route: 065
     Dates: start: 19970401
  3. SULPIRIDE [Suspect]
     Indication: SCHIZOPHRENIA
     Dosage: 1200MG/DAY
     Route: 048
     Dates: start: 19970722
  4. CLOZARIL [Suspect]
     Indication: SCHIZOPHRENIA
     Dosage: 800MG/DAY
     Route: 048
     Dates: start: 19970605
  5. HYOSCINE HBR HYT [Concomitant]
     Indication: SALIVARY HYPERSECRETION
     Dosage: 300UG/DAY
     Route: 048
     Dates: start: 20020516

REACTIONS (9)
  - ARTHRITIS [None]
  - CONFUSIONAL STATE [None]
  - CONSTIPATION [None]
  - DIABETES MELLITUS [None]
  - INFLUENZA LIKE ILLNESS [None]
  - LETHARGY [None]
  - PROTEIN URINE [None]
  - TREMOR [None]
  - WEIGHT DECREASED [None]
